FAERS Safety Report 11965506 (Version 2)
Quarter: 2016Q2

REPORT INFORMATION
  Report Type: Report from Study
  Country: US (occurrence: US)
  Receive Date: 20160127
  Receipt Date: 20160421
  Transmission Date: 20160815
  Serious: No
  Sender: FDA-Public Use
  Company Number: US-AMGEN-USASL2015138995

PATIENT
  Age: 80 Year
  Sex: Female

DRUGS (1)
  1. REPATHA [Suspect]
     Active Substance: EVOLOCUMAB
     Indication: DYSLIPIDAEMIA
     Dosage: 140 MG/ML, Q2WK
     Route: 065
     Dates: start: 20151209, end: 20160107

REACTIONS (27)
  - Nasal congestion [Not Recovered/Not Resolved]
  - Peripheral swelling [Not Recovered/Not Resolved]
  - Weight increased [Recovering/Resolving]
  - Cough [Unknown]
  - Musculoskeletal stiffness [Not Recovered/Not Resolved]
  - Hot flush [Unknown]
  - Joint stiffness [Unknown]
  - Asthenia [Recovering/Resolving]
  - Breast swelling [Not Recovered/Not Resolved]
  - Muscle spasms [Unknown]
  - Pain in extremity [Unknown]
  - Dizziness [Not Recovered/Not Resolved]
  - Arthralgia [Recovering/Resolving]
  - Back pain [Recovering/Resolving]
  - Drug effect incomplete [Unknown]
  - Abdominal distension [Unknown]
  - Toothache [Not Recovered/Not Resolved]
  - Mobility decreased [Not Recovered/Not Resolved]
  - Headache [Not Recovered/Not Resolved]
  - Laceration [Recovering/Resolving]
  - Fall [Recovering/Resolving]
  - Rhinorrhoea [Not Recovered/Not Resolved]
  - Breast pain [Recovering/Resolving]
  - Swelling [Unknown]
  - Limb discomfort [Not Recovered/Not Resolved]
  - Abdominal pain upper [Not Recovered/Not Resolved]
  - Skin abrasion [Recovering/Resolving]

NARRATIVE: CASE EVENT DATE: 201512
